FAERS Safety Report 15489438 (Version 3)
Quarter: 2019Q1

REPORT INFORMATION
  Report Type: Spontaneous
  Country: US (occurrence: US)
  Receive Date: 20181011
  Receipt Date: 20190131
  Transmission Date: 20190417
  Serious: Yes (Death, Other)
  Sender: FDA-Public Use
  Company Number: US-PFIZER INC-2018406849

PATIENT
  Age: 41 Year
  Sex: Male

DRUGS (7)
  1. CARBOPLATINUM [Concomitant]
     Active Substance: CARBOPLATIN
     Indication: HODGKIN^S DISEASE
     Dosage: UNK, CYCLIC (TWO CYCLES, SALVAGE CHEMOTHERAPY)
  2. TACROLIMUS. [Suspect]
     Active Substance: TACROLIMUS
     Indication: PROPHYLAXIS AGAINST GRAFT VERSUS HOST DISEASE
     Dosage: UNK
  3. BUSULFAN. [Concomitant]
     Active Substance: BUSULFAN
     Indication: HODGKIN^S DISEASE
     Dosage: UNK, CYCLIC (TARGETED TO AN AVERAGE CONCENTRATION AT STEADY STATE OF 800-1000 NG/ML FOR 4 DAYS)
     Route: 042
  4. ETOPOSIDE. [Concomitant]
     Active Substance: ETOPOSIDE
     Indication: HODGKIN^S DISEASE
     Dosage: UNK, CYCLIC (FOR TWO CYCLES,SALVAGE CHEMOTHERAPY)
  5. METHOTREXATE SODIUM. [Suspect]
     Active Substance: METHOTREXATE SODIUM
     Indication: PROPHYLAXIS AGAINST GRAFT VERSUS HOST DISEASE
     Dosage: UNK
  6. IFOSFAMIDE. [Concomitant]
     Active Substance: IFOSFAMIDE
     Indication: HODGKIN^S DISEASE
     Dosage: UNK, CYCLIC (TWO CYCLES, SALVAGE CHEMOTHERAPY)
  7. FLUDARABINE [Concomitant]
     Active Substance: FLUDARABINE PHOSPHATE
     Indication: HODGKIN^S DISEASE
     Dosage: UNK, CYCLIC (40 MG/M^2 FOR 4 DAYS)
     Route: 042

REACTIONS (1)
  - Progressive multifocal leukoencephalopathy [Fatal]
